FAERS Safety Report 5038713-3 (Version None)
Quarter: 2006Q2

REPORT INFORMATION
  Report Type: 
  Country: None (occurrence: None)
  Receive Date: 20060629
  Receipt Date: 20060531
  Transmission Date: 20061013
  Serious: No
  Sender: FDA-Public Use
  Company Number: US-BRISTOL-MYERS SQUIBB COMPANY-13395801

PATIENT
  Age: 55 Year
  Sex: Male
  Weight: 59 kg

DRUGS (2)
  1. REYATAZ [Suspect]
     Indication: HIV INFECTION
     Route: 048
     Dates: start: 20060301
  2. TRUVADA [Concomitant]
     Dates: start: 20060301

REACTIONS (1)
  - EPISTAXIS [None]
